FAERS Safety Report 14746886 (Version 1)
Quarter: 2018Q2

REPORT INFORMATION
  Report Type: Other
  Country: JP (occurrence: JP)
  Receive Date: 20180411
  Receipt Date: 20180411
  Transmission Date: 20180711
  Serious: Yes (Other)
  Sender: FDA-Public Use
  Company Number: JP-ALSI-201800279

PATIENT
  Age: 73 Year
  Sex: Female
  Weight: 52 kg

DRUGS (4)
  1. ROCURONIUM [Concomitant]
     Active Substance: ROCURONIUM BROMIDE
  2. PROPOFOL. [Concomitant]
     Active Substance: PROPOFOL
  3. SEVOFLURANE. [Concomitant]
     Active Substance: SEVOFLURANE
  4. CARBON DIOXIDE. [Suspect]
     Active Substance: CARBON DIOXIDE
     Indication: OESOPHAGEAL OPERATION
     Route: 049

REACTIONS (4)
  - Hypercapnia [Recovered/Resolved]
  - Pneumoperitoneum [Recovered/Resolved]
  - Subcutaneous emphysema [Recovered/Resolved]
  - Off label use [Recovered/Resolved]
